FAERS Safety Report 7561676-3 (Version None)
Quarter: 2011Q2

REPORT INFORMATION
  Report Type: 
  Country: None (occurrence: None)
  Receive Date: 20110621
  Receipt Date: 20110114
  Transmission Date: 20111010
  Serious: No
  Sender: FDA-Public Use
  Company Number: US-ASTRAZENECA-2011SE00385

PATIENT
  Age: 61 Year
  Sex: Female

DRUGS (3)
  1. NEXIUM [Suspect]
     Route: 048
  2. TOPROL-XL [Suspect]
     Route: 048
  3. RHINOCORT [Suspect]
     Route: 045

REACTIONS (11)
  - DYSPHONIA [None]
  - DIARRHOEA [None]
  - ULCER [None]
  - GASTROOESOPHAGEAL REFLUX DISEASE [None]
  - GASTRIC ULCER [None]
  - BLOOD CHOLESTEROL INCREASED [None]
  - ARTHRITIS [None]
  - OROPHARYNGEAL PAIN [None]
  - DRUG INEFFECTIVE [None]
  - REGURGITATION [None]
  - INSOMNIA [None]
